FAERS Safety Report 7363336-0 (Version None)
Quarter: 2011Q1

REPORT INFORMATION
  Report Type: 
  Country: None (occurrence: None)
  Receive Date: 20110321
  Receipt Date: 20110311
  Transmission Date: 20110831
  Serious: Yes (Hospitalization)
  Sender: FDA-Public Use
  Company Number: AR-AMGEN-ARGSP2011014391

PATIENT
  Sex: Female

DRUGS (2)
  1. DIPYRONE [Suspect]
     Dosage: UNK
  2. ENBREL [Suspect]
     Indication: PRODUCT USED FOR UNKNOWN INDICATION
     Dosage: UNK

REACTIONS (5)
  - DRUG HYPERSENSITIVITY [None]
  - PULMONARY FIBROSIS [None]
  - PULMONARY OEDEMA [None]
  - GASTRITIS [None]
  - MALAISE [None]
